FAERS Safety Report 8033820-5 (Version None)
Quarter: 2011Q4

REPORT INFORMATION
  Report Type: 
  Country: None (occurrence: None)
  Receive Date: 20111227
  Receipt Date: 20111219
  Transmission Date: 20120403
  Serious: Yes (Other)
  Sender: FDA-Public Use
  Company Number: US-1189122

PATIENT
  Age: 76 Year
  Weight: 72.5755 kg

DRUGS (7)
  1. VIGAMOX [Suspect]
     Indication: CATARACT OPERATION
     Dosage: OPHTHALMIC
     Route: 047
  2. BSS [Suspect]
     Indication: CATARACT OPERATION
     Dosage: INTRAOCULAR
     Route: 031
     Dates: start: 20111014, end: 20111014
  3. BETADINE [Concomitant]
  4. BSS [Suspect]
     Indication: CATARACT OPERATION
     Dosage: INTRAOCULAR
     Route: 031
     Dates: start: 20111014, end: 20111014
  5. PREDNISOLONE ACETATE [Suspect]
     Indication: CATARACT OPERATION
     Dosage: OPHTHALMIC
     Route: 047
  6. NEVANAC [Suspect]
     Indication: CATARACT OPERATION
     Dosage: OPHTHALMIC
     Route: 047
  7. TETRACAINE HYDROCHLORIDE 0.5 % OPTHALMIC SOLUTION [Suspect]
     Indication: CATARACT OPERATION
     Dosage: OPTHALMIC
     Route: 047

REACTIONS (2)
  - TOXIC ANTERIOR SEGMENT SYNDROME [None]
  - ENDOPHTHALMITIS [None]
